FAERS Safety Report 19700594 (Version 1)
Quarter: 2021Q3

REPORT INFORMATION
  Report Type: Spontaneous
  Country: US (occurrence: US)
  Receive Date: 20210813
  Receipt Date: 20210813
  Transmission Date: 20211014
  Serious: No
  Sender: FDA-Public Use
  Company Number: US-TOLMAR, INC.-21US027767

PATIENT
  Sex: Female
  Weight: 60.77 kg

DRUGS (1)
  1. CLOBETASOL PROPIONATE. [Suspect]
     Active Substance: CLOBETASOL PROPIONATE
     Indication: ALOPECIA
     Dosage: UNK UNK, 3/WEEK
     Route: 003
     Dates: start: 2017

REACTIONS (5)
  - Inappropriate schedule of product administration [Unknown]
  - Product container issue [Not Recovered/Not Resolved]
  - Incorrect product administration duration [Not Recovered/Not Resolved]
  - Muscular weakness [Unknown]
  - Off label use [Unknown]
